FAERS Safety Report 5647675-7 (Version None)
Quarter: 2008Q1

REPORT INFORMATION
  Report Type: 
  Country: None (occurrence: None)
  Receive Date: 20080303
  Receipt Date: 20080223
  Transmission Date: 20080703
  Serious: Yes (Other)
  Sender: FDA-Public Use
  Company Number: US-PFIZER INC-2007085497

PATIENT
  Sex: Female
  Weight: 63.636 kg

DRUGS (4)
  1. CHANTIX [Suspect]
     Indication: SMOKING CESSATION THERAPY
     Dates: start: 20070201, end: 20070901
  2. NEURONTIN [Concomitant]
  3. BUSPAR [Concomitant]
  4. EVISTA [Concomitant]

REACTIONS (8)
  - CATARACT [None]
  - DYSSTASIA [None]
  - HYPERGLYCAEMIA [None]
  - MALAISE [None]
  - NAUSEA [None]
  - TYPE 2 DIABETES MELLITUS [None]
  - VISUAL ACUITY REDUCED [None]
  - VISUAL DISTURBANCE [None]
